FAERS Safety Report 11702827 (Version 1)
Quarter: 2015Q4

REPORT INFORMATION
  Report Type: Spontaneous
  Country: PT (occurrence: PT)
  Receive Date: 20151105
  Receipt Date: 20151105
  Transmission Date: 20160304
  Serious: Yes (Other)
  Sender: FDA-Public Use
  Company Number: PT-GLAXOSMITHKLINE-PT2015155710

PATIENT
  Age: 47 Year
  Sex: Female

DRUGS (10)
  1. BECLOTAIDE [Suspect]
     Active Substance: BECLOMETHASONE DIPROPIONATE
     Indication: PRODUCT USED FOR UNKNOWN INDICATION
     Route: 055
     Dates: start: 20150511
  2. SEDOXIL [Concomitant]
     Active Substance: MEXAZOLAM
     Indication: DEPRESSION
     Route: 048
  3. ADT [Concomitant]
     Active Substance: AMITRIPTYLINE HYDROCHLORIDE
     Indication: DEPRESSION
     Route: 048
  4. FLUOXETINE [Concomitant]
     Active Substance: FLUOXETINE HYDROCHLORIDE
     Indication: DEPRESSION
     Dosage: 75 MG, UNK
     Route: 048
  5. OMEPRAZOL [Concomitant]
     Active Substance: OMEPRAZOLE
     Dosage: 20 MG, UNK
     Route: 048
  6. SERTACONAZOLE [Concomitant]
     Active Substance: SERTACONAZOLE
     Dates: start: 20150511
  7. AMOXICILINA + CLAVULANIC ACID [Suspect]
     Active Substance: AMOXICILLIN\CLAVULANIC ACID
     Indication: SINUSITIS
     Route: 048
     Dates: start: 20150505, end: 20150512
  8. BROMALEX [Concomitant]
     Indication: DEPRESSION
     Dosage: 3 MG, UNK
     Route: 048
  9. TERBINAFINA [Concomitant]
     Active Substance: TERBINAFINE
     Dates: start: 20150511
  10. LORENIN [Concomitant]
     Active Substance: LORAZEPAM
     Indication: DEPRESSION
     Route: 048

REACTIONS (3)
  - Blister [Recovered/Resolved]
  - Pruritus [Recovered/Resolved]
  - Aphthous ulcer [Recovered/Resolved]

NARRATIVE: CASE EVENT DATE: 20150509
